FAERS Safety Report 19579454 (Version 3)
Quarter: 2021Q3

REPORT INFORMATION
  Report Type: Spontaneous
  Country: ES (occurrence: ES)
  Receive Date: 20210720
  Receipt Date: 20210825
  Transmission Date: 20211014
  Serious: Yes (Death, Life-Threatening, Hospitalization, Other)
  Sender: FDA-Public Use
  Company Number: ES-AUROBINDO-AUR-APL-2021-030390

PATIENT
  Age: 82 Year
  Sex: Female

DRUGS (5)
  1. LEVETIRACETAM. [Suspect]
     Active Substance: LEVETIRACETAM
     Indication: EPILEPSY
  2. LACOSAMIDE. [Concomitant]
     Active Substance: LACOSAMIDE
     Indication: STATUS EPILEPTICUS
     Dosage: 400 MILLIGRAM, ONCE A DAY
     Route: 042
  3. PHENYTOIN. [Suspect]
     Active Substance: PHENYTOIN
     Indication: STATUS EPILEPTICUS
     Dosage: 375 MILLIGRAM, ONCE A DAY (125 MILLIGRAM 3 TIMES A DAY)
     Route: 065
  4. LEVETIRACETAM. [Suspect]
     Active Substance: LEVETIRACETAM
     Indication: STATUS EPILEPTICUS
     Dosage: 3000 MILLIGRAM, ONCE A DAY
     Route: 065
  5. METHYLPREDNISOLONE. [Suspect]
     Active Substance: METHYLPREDNISOLONE
     Indication: STATUS EPILEPTICUS
     Dosage: 1000 MILLIGRAM
     Route: 042

REACTIONS (8)
  - Drug ineffective [Unknown]
  - Creutzfeldt-Jakob disease [Fatal]
  - Respiratory tract infection [Unknown]
  - Disease progression [Fatal]
  - Death [Fatal]
  - Product use in unapproved indication [Unknown]
  - Multiple-drug resistance [Fatal]
  - Status epilepticus [Fatal]
